FAERS Safety Report 12330269 (Version 6)
Quarter: 2018Q2

REPORT INFORMATION
  Report Type: Spontaneous
  Country: IT (occurrence: IT)
  Receive Date: 20160504
  Receipt Date: 20180504
  Transmission Date: 20180711
  Serious: Yes (Hospitalization)
  Sender: FDA-Public Use
  Company Number: IT-ROCHE-1750923

PATIENT
  Age: 66 Year
  Sex: Male

DRUGS (4)
  1. ESBRIET [Suspect]
     Active Substance: PIRFENIDONE
     Indication: IDIOPATHIC PULMONARY FIBROSIS
     Dosage: 267 MG-63 (1X21 AND 1X42) CAPSULES
     Route: 048
     Dates: start: 20160317, end: 20170807
  2. ESBRIET [Suspect]
     Active Substance: PIRFENIDONE
     Dosage: 267 MG - HARD CAPSULE
     Route: 048
     Dates: end: 20160422
  3. ESBRIET [Suspect]
     Active Substance: PIRFENIDONE
     Dosage: 267 MG - HARD CAPSULE
     Route: 048
  4. LEVODROPROPIZINE [Concomitant]
     Active Substance: LEVODROPROPIZINE

REACTIONS (5)
  - Hepatitis acute [Recovering/Resolving]
  - Transaminases increased [Recovering/Resolving]
  - Nausea [Recovering/Resolving]
  - Decreased appetite [Recovering/Resolving]
  - Abdominal pain [Recovered/Resolved]

NARRATIVE: CASE EVENT DATE: 201604
